FAERS Safety Report 6428786-5 (Version None)
Quarter: 2009Q4

REPORT INFORMATION
  Report Type: 
  Country: None (occurrence: None)
  Receive Date: 20091105
  Receipt Date: 20091028
  Transmission Date: 20100525
  Serious: Yes (Hospitalization)
  Sender: FDA-Public Use
  Company Number: JP-JNJFOC-20090604611

PATIENT
  Sex: Female

DRUGS (23)
  1. GOLIMUMAB [Suspect]
     Route: 058
  2. GOLIMUMAB [Suspect]
     Route: 058
  3. GOLIMUMAB [Suspect]
     Route: 058
  4. GOLIMUMAB [Suspect]
     Route: 058
  5. GOLIMUMAB [Suspect]
     Route: 058
  6. GOLIMUMAB [Suspect]
     Indication: RHEUMATOID ARTHRITIS
     Route: 058
  7. PLACEBO [Suspect]
     Route: 058
  8. PLACEBO [Suspect]
     Route: 058
  9. PLACEBO [Suspect]
     Route: 058
  10. PLACEBO [Suspect]
     Indication: RHEUMATOID ARTHRITIS
     Route: 058
  11. DEPAS [Concomitant]
     Indication: SLEEP DISORDER
     Route: 048
  12. PREDNISONE [Concomitant]
     Route: 048
  13. PREDNISONE [Concomitant]
     Indication: RHEUMATOID ARTHRITIS
     Route: 048
  14. SELTOUCH [Concomitant]
     Indication: RHEUMATOID ARTHRITIS
     Route: 062
  15. DICLOFENAC SODIUM [Concomitant]
     Indication: RHEUMATOID ARTHRITIS
     Route: 048
  16. LANSOPRAZOLE [Concomitant]
     Indication: GASTRITIS PROPHYLAXIS
     Route: 048
  17. VOLTAREN [Concomitant]
     Indication: RHEUMATOID ARTHRITIS
     Route: 062
  18. MYSLEE [Concomitant]
     Indication: SLEEP DISORDER
     Route: 048
  19. GASMOTIN [Concomitant]
     Indication: REFLUX LARYNGITIS
     Route: 048
  20. CRAVIT [Concomitant]
     Indication: CONJUNCTIVAL HYPERAEMIA
     Route: 047
  21. FLUMETHOLON [Concomitant]
     Indication: CONJUNCTIVAL HYPERAEMIA
     Route: 048
  22. FAROM [Concomitant]
     Indication: CELLULITIS
     Route: 048
  23. ETANERCEPT [Concomitant]

REACTIONS (3)
  - CELLULITIS [None]
  - GLAUCOMA [None]
  - RHEUMATOID ARTHRITIS [None]
